FAERS Safety Report 14153645 (Version 1)
Quarter: 2017Q4

REPORT INFORMATION
  Report Type: Spontaneous
  Country: US (occurrence: US)
  Receive Date: 20171102
  Receipt Date: 20171102
  Transmission Date: 20180321
  Serious: No
  Sender: FDA-Public Use
  Company Number: US-SA-2017SA175285

PATIENT

DRUGS (2)
  1. PRALUENT [Suspect]
     Active Substance: ALIROCUMAB
     Indication: ACCIDENTAL EXPOSURE TO PRODUCT
     Route: 058
  2. ALIROCUMAB PREFILLED PEN [Suspect]
     Active Substance: ALIROCUMAB
     Indication: ACCIDENTAL EXPOSURE TO PRODUCT

REACTIONS (3)
  - Device use issue [Unknown]
  - Injury associated with device [Unknown]
  - Puncture site haemorrhage [Unknown]
